FAERS Safety Report 14993565 (Version 1)
Quarter: 2018Q2

REPORT INFORMATION
  Report Type: Spontaneous
  Country: FR (occurrence: FR)
  Receive Date: 20180611
  Receipt Date: 20180611
  Transmission Date: 20180711
  Serious: Yes (Hospitalization, Other)
  Sender: FDA-Public Use
  Company Number: FR-AUROBINDO-AUR-APL-2018-030347

PATIENT
  Age: 19 Year
  Sex: Female

DRUGS (6)
  1. JOSACINE                           /00273601/ [Suspect]
     Active Substance: JOSAMYCIN
     Indication: PRODUCT USED FOR UNKNOWN INDICATION
     Dosage: UNK
     Route: 048
     Dates: start: 20141105, end: 20141108
  2. PARACETAMOL [Suspect]
     Active Substance: ACETAMINOPHEN
     Indication: PRODUCT USED FOR UNKNOWN INDICATION
     Dosage: UNK
     Route: 048
     Dates: start: 20141105, end: 20141108
  3. NUROFEN                            /00109201/ [Suspect]
     Active Substance: IBUPROFEN
     Indication: PAIN
     Dosage: UNK
     Route: 048
     Dates: start: 20141104
  4. SOLUPRED                           /00016201/ [Suspect]
     Active Substance: PREDNISOLONE
     Indication: PRODUCT USED FOR UNKNOWN INDICATION
     Dosage: UNK
     Route: 048
     Dates: start: 20141105, end: 20141108
  5. ACETYLSALICYLIC ACID [Suspect]
     Active Substance: ASPIRIN
     Indication: PAIN
     Dosage: 1 GRAM, DAILY
     Route: 048
     Dates: start: 20141104
  6. DAFALGAN CODEINE [Concomitant]
     Active Substance: ACETAMINOPHEN\CODEINE PHOSPHATE
     Indication: PRODUCT USED FOR UNKNOWN INDICATION
     Dosage: UNK
     Route: 048
     Dates: start: 20141108, end: 20141108

REACTIONS (7)
  - Lymphadenopathy [Recovered/Resolved]
  - Cellulitis [Recovered/Resolved]
  - Dysphonia [Recovered/Resolved]
  - Pharyngeal oedema [Recovered/Resolved]
  - Peritonsillar abscess [Recovered/Resolved]
  - Condition aggravated [Recovered/Resolved]
  - Tonsillar inflammation [Recovered/Resolved]

NARRATIVE: CASE EVENT DATE: 201411
